FAERS Safety Report 5610899-9 (Version None)
Quarter: 2008Q1

REPORT INFORMATION
  Report Type: 
  Country: None (occurrence: None)
  Receive Date: 20080201
  Receipt Date: 20071128
  Transmission Date: 20080703
  Serious: Yes (Hospitalization)
  Sender: FDA-Public Use
  Company Number: IT-AVENTIS-200715636EU

PATIENT
  Age: 86 Year
  Sex: Female

DRUGS (7)
  1. LASIX [Suspect]
     Route: 048
     Dates: start: 20071001
  2. TRIATEC                            /00885601/ [Suspect]
     Route: 048
     Dates: start: 20071001
  3. ALLOPURINOL [Suspect]
     Route: 048
     Dates: start: 20070901
  4. COUMADIN [Concomitant]
  5. EFEXOR                             /01233802/ [Concomitant]
  6. TIMOPTIC [Concomitant]
     Route: 047
  7. GLIBOMET [Concomitant]

REACTIONS (1)
  - TOXIC SKIN ERUPTION [None]
